FAERS Safety Report 4426185-9 (Version None)
Quarter: 2004Q3

REPORT INFORMATION
  Report Type: 
  Country: None (occurrence: None)
  Receive Date: 20040811
  Receipt Date: 20040727
  Transmission Date: 20050211
  Serious: Yes (Hospitalization)
  Sender: FDA-Public Use
  Company Number: 04P-163-0268743-00

PATIENT
  Age: 60 Year
  Sex: Female
  Weight: 100.2449 kg

DRUGS (2)
  1. SYNTHROID [Suspect]
     Indication: HYPOTHYROIDISM
     Dates: start: 20040227
  2. BIFEPRUNOX [Suspect]
     Indication: SCHIZOPHRENIA
     Dates: start: 20040622, end: 20040708

REACTIONS (3)
  - CONDITION AGGRAVATED [None]
  - PSYCHOTIC DISORDER [None]
  - SLEEP DISORDER [None]
